FAERS Safety Report 20944756 (Version 1)
Quarter: 2022Q2

REPORT INFORMATION
  Report Type: Spontaneous
  Country: GB (occurrence: GB)
  Receive Date: 20220610
  Receipt Date: 20220610
  Transmission Date: 20220720
  Serious: Yes (Death)
  Sender: FDA-Public Use
  Company Number: GB-SUN PHARMACEUTICAL INDUSTRIES LTD-2022RR-340559

PATIENT
  Age: 23 Year
  Sex: Male
  Weight: 93 kg

DRUGS (4)
  1. NOREPINEPHRINE [Suspect]
     Active Substance: NOREPINEPHRINE
     Indication: Blood pressure management
     Dosage: 0.07 MICROGRAM/KILOGRAM/MIN
     Route: 065
  2. NOREPINEPHRINE [Suspect]
     Active Substance: NOREPINEPHRINE
     Dosage: MICROGRAM/KILOGRAM/MIN
     Route: 065
  3. METARAMINOL [Suspect]
     Active Substance: METARAMINOL
     Indication: Blood pressure management
     Dosage: 7.5 MILLIGRAM PER HOUR
     Route: 065
  4. VASOPRESSIN [Suspect]
     Active Substance: VASOPRESSIN
     Indication: Product used for unknown indication
     Dosage: 0.04 INTERNATIONAL UNIT/MIN
     Route: 065

REACTIONS (2)
  - Oliguria [Fatal]
  - Drug ineffective [Fatal]
